FAERS Safety Report 11463895 (Version 1)
Quarter: 2015Q3

REPORT INFORMATION
  Report Type: Spontaneous
  Country: US (occurrence: US)
  Receive Date: 20150831
  Receipt Date: 20150831
  Transmission Date: 20151125
  Serious: No
  Sender: FDA-Public Use
  Company Number: US-ELI_LILLY_AND_COMPANY-US201105004203

PATIENT
  Age: 53 Year
  Sex: Female

DRUGS (3)
  1. CYMBALTA [Suspect]
     Active Substance: DULOXETINE HYDROCHLORIDE
     Indication: NEUROPATHY PERIPHERAL
     Dosage: 60 MG, QD
     Dates: start: 201103, end: 20110506
  2. TRAMADOL. [Concomitant]
     Active Substance: TRAMADOL
     Dosage: 50 MG, UNKNOWN
  3. LYRICA [Concomitant]
     Active Substance: PREGABALIN

REACTIONS (8)
  - Back pain [Unknown]
  - Musculoskeletal pain [Not Recovered/Not Resolved]
  - Mobility decreased [Unknown]
  - Off label use [Recovered/Resolved]
  - Crying [Unknown]
  - Gait disturbance [Recovered/Resolved]
  - Musculoskeletal stiffness [Unknown]
  - Intentional product misuse [Recovered/Resolved]
